FAERS Safety Report 5193706-0 (Version None)
Quarter: 2006Q4

REPORT INFORMATION
  Report Type: 
  Country: None (occurrence: None)
  Receive Date: 20061228
  Receipt Date: 20061218
  Transmission Date: 20070319
  Serious: Yes (Disabling)
  Sender: FDA-Public Use
  Company Number: PHBS2006DK19912

PATIENT
  Age: 53 Year
  Sex: Male

DRUGS (1)
  1. LAMISIL [Suspect]
     Dosage: 250 MG/DAY
     Dates: start: 20050608, end: 20060101

REACTIONS (1)
  - ANOSMIA [None]
